FAERS Safety Report 6340316-5 (Version None)
Quarter: 2009Q3

REPORT INFORMATION
  Report Type: 
  Country: None (occurrence: None)
  Receive Date: 20090902
  Receipt Date: 20090818
  Transmission Date: 20100115
  Serious: Yes (Death, Other)
  Sender: FDA-Public Use
  Company Number: 2009002509

PATIENT
  Age: 57 Year
  Sex: Male

DRUGS (4)
  1. TARCEVA [Suspect]
     Indication: PANCREATIC CARCINOMA
     Dosage: (MG), ORAL
     Route: 048
  2. BEVACIZUMAB [Suspect]
  3. GEMCITABINE [Suspect]
  4. OXALIPLATIN [Suspect]

REACTIONS (12)
  - ASCITES [None]
  - CANDIDIASIS [None]
  - CITROBACTER INFECTION [None]
  - EMPYEMA [None]
  - FISTULA [None]
  - GASTRIC PERFORATION [None]
  - KLEBSIELLA INFECTION [None]
  - MALIGNANT NEOPLASM PROGRESSION [None]
  - PANCREATIC ABSCESS [None]
  - PANCREATIC CARCINOMA [None]
  - PLEURAL EFFUSION [None]
  - PYREXIA [None]
